FAERS Safety Report 8970172 (Version 1)
Quarter: 2012Q4

REPORT INFORMATION
  Report Type: 
  Country: US (occurrence: US)
  Receive Date: 20121217
  Receipt Date: 20121217
  Transmission Date: 20130627
  Serious: Yes (Other)
  Sender: FDA-Public Use
  Company Number: US-PFIZER INC-2012315496

PATIENT
  Age: 67 Year
  Sex: Male
  Weight: 64.4 kg

DRUGS (4)
  1. LYRICA [Suspect]
     Indication: FIBROMYALGIA
     Dosage: 50 mg, 1x/day
     Dates: start: 201211
  2. LYRICA [Suspect]
     Indication: TINGLING
     Dosage: 50 mg, 2x/day
     Dates: start: 201211
  3. LYRICA [Suspect]
     Indication: NUMBNESS IN LEG
     Dosage: 50 mg, 1x/day
  4. LORTAB [Concomitant]
     Indication: PAIN
     Dosage: 10/500mg, three or four times a day

REACTIONS (18)
  - Drug withdrawal syndrome [Recovering/Resolving]
  - Convulsion [Unknown]
  - Pyrexia [Unknown]
  - Hypoaesthesia [Unknown]
  - Paraesthesia oral [Unknown]
  - Somnolence [Unknown]
  - Drug ineffective [Unknown]
  - Chills [Unknown]
  - Tremor [Unknown]
  - Vomiting [Unknown]
  - Headache [Unknown]
  - Dizziness [Unknown]
  - Disorientation [Unknown]
  - Feeling abnormal [Unknown]
  - Hyperhidrosis [Unknown]
  - Inappropriate schedule of drug administration [Unknown]
  - Sluggishness [Unknown]
  - Vision blurred [Unknown]
